FAERS Safety Report 9838216 (Version 1)
Quarter: 2014Q1

REPORT INFORMATION
  Report Type: Spontaneous
  Country: US (occurrence: US)
  Receive Date: 20140123
  Receipt Date: 20140123
  Transmission Date: 20141002
  Serious: Yes (Death)
  Sender: FDA-Public Use
  Company Number: US-PFIZER INC-2014019603

PATIENT
  Age: 70 Year
  Sex: Male

DRUGS (12)
  1. XALKORI [Suspect]
     Indication: LUNG NEOPLASM MALIGNANT
     Dosage: 250 MG, UNK
     Dates: start: 20131223
  2. ATIVAN [Concomitant]
     Dosage: UNK
  3. CLARITIN [Concomitant]
     Dosage: UNK
  4. COREG [Concomitant]
     Dosage: UNK
  5. DEXAMETHASONE [Concomitant]
     Dosage: UNK
  6. DULCOLAX [Concomitant]
     Dosage: UNK
  7. DUONEB [Concomitant]
     Dosage: UNK
  8. FLEET ENEMA [Concomitant]
     Dosage: UNK
  9. LIPITOR [Concomitant]
     Dosage: UNK
  10. LOPERAMIDE [Concomitant]
     Dosage: UNK
  11. NOVOLOG [Concomitant]
     Dosage: UNK
  12. OMEPRAZOLE [Concomitant]
     Dosage: UNK

REACTIONS (1)
  - Death [Fatal]
